FAERS Safety Report 9851853 (Version 2)
Quarter: 2014Q1

REPORT INFORMATION
  Report Type: Spontaneous
  Country: US (occurrence: US)
  Receive Date: 20140129
  Receipt Date: 20140129
  Transmission Date: 20141002
  Serious: Yes (Other)
  Sender: FDA-Public Use
  Company Number: US-GE HEALTHCARE MEDICAL DIAGNOSTICS-OSCN-PR-0803S-0146

PATIENT
  Sex: Female

DRUGS (8)
  1. GADOLINIUM (UNSPECIFIED) [Suspect]
     Indication: HEADACHE
     Dates: start: 19941117, end: 19941117
  2. MAGNEVIST [Suspect]
     Indication: HYPOAESTHESIA
     Dates: start: 19990715, end: 19990715
  3. MAGNEVIST [Suspect]
     Dates: start: 2007, end: 2007
  4. CARTIA XT [Concomitant]
  5. DIOVAN [Concomitant]
  6. DISOPYRAMIDE [Concomitant]
  7. WARFARIN [Concomitant]
  8. METFORMIN [Concomitant]

REACTIONS (1)
  - Nephrogenic systemic fibrosis [Not Recovered/Not Resolved]
